FAERS Safety Report 4542247-X (Version None)
Quarter: 2004Q4

REPORT INFORMATION
  Report Type: 
  Country: None (occurrence: None)
  Receive Date: 20041227
  Receipt Date: 20041216
  Transmission Date: 20050328
  Serious: Yes (Hospitalization, Other)
  Sender: FDA-Public Use
  Company Number: HQWYE096114AUG03

PATIENT
  Age: 60 Year
  Sex: Female
  Weight: 86.26 kg

DRUGS (8)
  1. PREMPRO [Suspect]
     Dosage: ORAL
     Route: 048
  2. PREMARIN [Suspect]
     Dosage: ORAL
     Route: 048
  3. INDOCINE (INDOMETACIN) [Concomitant]
  4. NAPROSYN [Concomitant]
  5. ZESTRIL [Concomitant]
  6. SYNTHROID [Concomitant]
  7. CLARITIN [Concomitant]
  8. ALBUTEROL [Concomitant]

REACTIONS (14)
  - BONE SCAN ABNORMAL [None]
  - BREAST CANCER METASTATIC [None]
  - CARBOHYDRATE ANTIGEN 27.29 INCREASED [None]
  - CARDIAC DISORDER [None]
  - CARDIOMEGALY [None]
  - CHEST PAIN [None]
  - DIASTOLIC DYSFUNCTION [None]
  - HIATUS HERNIA [None]
  - METASTASES TO LYMPH NODES [None]
  - MITRAL VALVE INCOMPETENCE [None]
  - PULMONARY HYPERTENSION [None]
  - THROMBOSIS [None]
  - TRICUSPID VALVE INCOMPETENCE [None]
  - ULTRASOUND DOPPLER ABNORMAL [None]
